FAERS Safety Report 7090072-0 (Version None)
Quarter: 2010Q4

REPORT INFORMATION
  Report Type: 
  Country: None (occurrence: None)
  Receive Date: 20101109
  Receipt Date: 20101101
  Transmission Date: 20110411
  Serious: No
  Sender: FDA-Public Use
  Company Number: 2009BI041515

PATIENT
  Age: 35 Year
  Sex: Female

DRUGS (2)
  1. TYSABRI [Suspect]
     Indication: MULTIPLE SCLEROSIS
     Route: 042
     Dates: start: 20071128
  2. ACYCLOVIR SODIUM [Concomitant]
     Indication: ANTIVIRAL PROPHYLAXIS

REACTIONS (7)
  - ANGER [None]
  - DEPRESSION [None]
  - GENITAL HERPES [None]
  - MUSCULAR WEAKNESS [None]
  - PARAESTHESIA [None]
  - STRESS [None]
  - WEIGHT INCREASED [None]
